FAERS Safety Report 8423664-4 (Version None)
Quarter: 2012Q2

REPORT INFORMATION
  Report Type: 
  Country: None (occurrence: None)
  Receive Date: 20120608
  Receipt Date: 20120531
  Transmission Date: 20120825
  Serious: Yes (Hospitalization)
  Sender: FDA-Public Use
  Company Number: GXBR2012US001476

PATIENT
  Sex: Female
  Weight: 79.365 kg

DRUGS (2)
  1. OMEPRAZOLE [Suspect]
     Indication: BARRETT'S OESOPHAGUS
     Dosage: 20 MG, QD
     Route: 048
     Dates: start: 20120301, end: 20120521
  2. LEVOTHYROXINE SODIUM [Concomitant]
     Indication: HYPOTHYROIDISM
     Dosage: 50 UG, QD
     Route: 048
     Dates: start: 20120101

REACTIONS (15)
  - BLOOD PRESSURE INCREASED [None]
  - ATRIOVENTRICULAR BLOCK SECOND DEGREE [None]
  - CHEST PAIN [None]
  - ALTERED STATE OF CONSCIOUSNESS [None]
  - SINUS TACHYCARDIA [None]
  - ANXIETY [None]
  - MALAISE [None]
  - TREMOR [None]
  - PULSE ABNORMAL [None]
  - KIDNEY INFECTION [None]
  - VENTRICULAR EXTRASYSTOLES [None]
  - PYREXIA [None]
  - HYPERNATRAEMIA [None]
  - BLOOD PRESSURE FLUCTUATION [None]
  - DIARRHOEA [None]
